FAERS Safety Report 10931508 (Version 1)
Quarter: 2015Q1

REPORT INFORMATION
  Report Type: Spontaneous
  Country: US (occurrence: US)
  Receive Date: 20150319
  Receipt Date: 20150319
  Transmission Date: 20150721
  Serious: No
  Sender: FDA-Public Use
  Company Number: US-BAUSCH-BL-2015-000553

PATIENT
  Age: 68 Year
  Sex: Female
  Weight: 56.3 kg

DRUGS (4)
  1. RETIN-A [Suspect]
     Active Substance: TRETINOIN
     Indication: PRODUCT USED FOR UNKNOWN INDICATION
     Route: 061
     Dates: start: 201409
  2. OBAGI 360 HYDRAFACTOR MOISTURIZING BROAD SPECTRUM SPF 30 SUNSCREEN [Suspect]
     Active Substance: AVOBENZONE\OCTINOXATE\OCTISALATE\OXYBENZONE
     Indication: PRODUCT USED FOR UNKNOWN INDICATION
     Route: 061
     Dates: start: 20141023
  3. LEVOTHYROXINE [Concomitant]
     Active Substance: LEVOTHYROXINE
  4. NORPRAMIN [Concomitant]
     Active Substance: DESIPRAMINE HYDROCHLORIDE

REACTIONS (1)
  - Skin exfoliation [Not Recovered/Not Resolved]

NARRATIVE: CASE EVENT DATE: 20141023
